FAERS Safety Report 17283490 (Version 1)
Quarter: 2020Q1

REPORT INFORMATION
  Report Type: Report from Study
  Country: BR (occurrence: BR)
  Receive Date: 20200117
  Receipt Date: 20200117
  Transmission Date: 20200409
  Serious: Yes (Other)
  Sender: FDA-Public Use
  Company Number: NVSC2020BR007230

PATIENT
  Sex: Male

DRUGS (2)
  1. HORMOTROP [Suspect]
     Active Substance: SOMATROPIN
     Indication: PRODUCT USED FOR UNKNOWN INDICATION
     Route: 065
  2. OMNITROPE [Suspect]
     Active Substance: SOMATROPIN
     Indication: GROWTH RETARDATION
     Dosage: 0.6 MG, 6 TIMES A WEEK
     Route: 058

REACTIONS (2)
  - Hallucination [Recovered/Resolved]
  - Mental disorder [Recovered/Resolved]
